FAERS Safety Report 6143769-0 (Version None)
Quarter: 2009Q2

REPORT INFORMATION
  Report Type: 
  Country: None (occurrence: None)
  Receive Date: 20090403
  Receipt Date: 20090325
  Transmission Date: 20091009
  Serious: Yes (Other)
  Sender: FDA-Public Use
  Company Number: PHHY2009JP00829

PATIENT
  Sex: Female
  Weight: 70 kg

DRUGS (2)
  1. DIOVAN [Suspect]
     Indication: HYPERTENSION
     Dosage: 80 MG, QD
     Route: 048
     Dates: start: 20080220, end: 20080805
  2. DIOVAN [Suspect]
     Dosage: 40 MG, QD
     Route: 048
     Dates: start: 20080806, end: 20081212

REACTIONS (5)
  - DYSGEUSIA [None]
  - MUCOSAL EROSION [None]
  - ORAL MUCOSAL ERYTHEMA [None]
  - PEMPHIGUS [None]
  - SWOLLEN TONGUE [None]
